FAERS Safety Report 25487049 (Version 1)
Quarter: 2025Q2

REPORT INFORMATION
  Report Type: Spontaneous
  Country: US (occurrence: US)
  Receive Date: 20250627
  Receipt Date: 20250627
  Transmission Date: 20250717
  Serious: No
  Sender: ABBVIE
  Company Number: US-ABBVIE-6341808

PATIENT
  Sex: Female
  Weight: 131.54 kg

DRUGS (1)
  1. HUMIRA [Suspect]
     Active Substance: ADALIMUMAB
     Indication: Crohn^s disease
     Dosage: STRENGTH 40MG
     Route: 058
     Dates: start: 2015

REACTIONS (2)
  - Maternal exposure during pregnancy [Unknown]
  - Live birth [Unknown]
